FAERS Safety Report 4449475-2 (Version None)
Quarter: 2004Q3

REPORT INFORMATION
  Report Type: 
  Country: None (occurrence: None)
  Receive Date: 20040913
  Receipt Date: 20040906
  Transmission Date: 20050211
  Serious: Yes (Hospitalization, Other)
  Sender: FDA-Public Use
  Company Number: 2004-08-0098

PATIENT
  Age: 65 Year
  Sex: Male
  Weight: 56 kg

DRUGS (7)
  1. REBETOL [Suspect]
     Indication: HEPATITIS C
     Dosage: SEE IMAGE
     Route: 048
     Dates: start: 20030502, end: 20030514
  2. REBETOL [Suspect]
     Indication: HEPATITIS C
     Dosage: SEE IMAGE
     Route: 048
     Dates: start: 20030515, end: 20030603
  3. REBETOL [Suspect]
     Indication: HEPATITIS C
     Dosage: SEE IMAGE
     Route: 048
     Dates: start: 20030502, end: 20030825
  4. REBETOL [Suspect]
     Indication: HEPATITIS C
     Dosage: SEE IMAGE
     Route: 048
     Dates: start: 20030617, end: 20030825
  5. INTRON A [Suspect]
     Indication: HEPATITIS C
     Dosage: SEE IMAGE
     Route: 030
     Dates: start: 20030502, end: 20030516
  6. INTRON A [Suspect]
     Indication: HEPATITIS C
     Dosage: SEE IMAGE
     Route: 030
     Dates: start: 20030502, end: 20030825
  7. INTRON A [Suspect]
     Indication: HEPATITIS C
     Dosage: SEE IMAGE
     Route: 030
     Dates: start: 20030519, end: 20030825

REACTIONS (9)
  - CONDITION AGGRAVATED [None]
  - EATING DISORDER [None]
  - LEUKOPLAKIA [None]
  - LICHEN PLANUS [None]
  - MOUTH HAEMORRHAGE [None]
  - MUCOSAL EROSION [None]
  - ORAL CANDIDIASIS [None]
  - ORAL LICHEN PLANUS [None]
  - VOCAL CORD DISORDER [None]
